FAERS Safety Report 20510538 (Version 4)
Quarter: 2023Q2

REPORT INFORMATION
  Report Type: Report from Study
  Country: JP (occurrence: JP)
  Receive Date: 20220224
  Receipt Date: 20230603
  Transmission Date: 20230722
  Serious: Yes (Hospitalization, Other)
  Sender: FDA-Public Use
  Company Number: JP-CELLTRION INC.-2022JP001824

PATIENT

DRUGS (13)
  1. INVESTIGATIONAL BIOSIMILARS [Suspect]
     Active Substance: INVESTIGATIONAL BIOSIMILARS
     Indication: HER2 positive gastric cancer
     Dosage: 420 MG, QD
     Route: 041
     Dates: start: 20211101, end: 20211101
  2. INVESTIGATIONAL BIOSIMILARS [Suspect]
     Active Substance: INVESTIGATIONAL BIOSIMILARS
     Dosage: 300 MG, QD
     Route: 041
     Dates: start: 20211129, end: 20211129
  3. INVESTIGATIONAL BIOSIMILARS [Suspect]
     Active Substance: INVESTIGATIONAL BIOSIMILARS
     Dosage: 300 MG, QD
     Route: 041
     Dates: start: 20211220, end: 20211220
  4. INVESTIGATIONAL BIOSIMILARS [Suspect]
     Active Substance: INVESTIGATIONAL BIOSIMILARS
     Dosage: 300 MG, QD
     Route: 041
     Dates: start: 20220117, end: 20220117
  5. INVESTIGATIONAL BIOSIMILARS [Suspect]
     Active Substance: INVESTIGATIONAL BIOSIMILARS
     Dosage: 420 MG, QD
     Route: 041
     Dates: start: 20220309, end: 20220309
  6. GIMERACIL\OTERACIL\TEGAFUR [Concomitant]
     Active Substance: GIMERACIL\OTERACIL\OTERACIL POTASSIUM\TEGAFUR
     Indication: HER2 positive gastric cancer
     Dosage: UNK
     Route: 048
     Dates: start: 20211101, end: 20220331
  7. ALLOPURINOL [Concomitant]
     Active Substance: ALLOPURINOL
     Indication: HER2 positive gastric cancer
     Dosage: UNK
     Route: 065
     Dates: end: 20220313
  8. LANSOPRAZOLE [Concomitant]
     Active Substance: LANSOPRAZOLE
     Indication: Gastrooesophageal reflux disease
     Dosage: UNK
     Route: 065
     Dates: end: 20220313
  9. METHYLCOBALAMIN [Concomitant]
     Active Substance: METHYLCOBALAMIN
     Indication: Vitamin B2 decreased
     Dosage: UNK
     Route: 065
     Dates: end: 20220313
  10. CEFMETAZOLE [Concomitant]
     Active Substance: CEFMETAZOLE
     Indication: Cholangitis
     Dosage: UNK
     Dates: start: 20220207, end: 20220220
  11. ACETAMINOPHEN [Concomitant]
     Active Substance: ACETAMINOPHEN
     Indication: Cholangitis
     Dosage: UNK
  12. PIPERACILLIN SODIUM\TAZOBACTAM SODIUM [Concomitant]
     Active Substance: PIPERACILLIN SODIUM\TAZOBACTAM SODIUM
     Indication: Cholangitis
     Dosage: UNK
     Dates: start: 20220220, end: 20220224
  13. PIPERACILLIN SODIUM\TAZOBACTAM SODIUM [Concomitant]
     Active Substance: PIPERACILLIN SODIUM\TAZOBACTAM SODIUM
     Indication: Cholecystitis
     Dosage: UNK
     Dates: start: 20220313, end: 20220329

REACTIONS (6)
  - Cholangitis [Recovering/Resolving]
  - Cholangitis [Recovering/Resolving]
  - Cholecystitis [Not Recovered/Not Resolved]
  - Gastric cancer recurrent [Unknown]
  - Overdose [Unknown]
  - Intentional product use issue [Unknown]

NARRATIVE: CASE EVENT DATE: 20211121
